FAERS Safety Report 8205300-5 (Version None)
Quarter: 2012Q1

REPORT INFORMATION
  Report Type: 
  Country: None (occurrence: None)
  Receive Date: 20120313
  Receipt Date: 20120307
  Transmission Date: 20120608
  Serious: Yes (Hospitalization)
  Sender: FDA-Public Use
  Company Number: US-B.I. PHARMACEUTICALS,INC./RIDGEFIELD-2012-BP-03141BP

PATIENT
  Sex: Female
  Weight: 57.15 kg

DRUGS (9)
  1. PRADAXA [Suspect]
     Indication: ATRIAL FIBRILLATION
     Dosage: 300 MG
     Route: 048
     Dates: start: 20110301, end: 20111015
  2. CRESTOR [Concomitant]
     Indication: CORONARY ARTERY DISEASE
  3. CRESTOR [Concomitant]
     Indication: HYPERLIPIDAEMIA
     Dosage: 40 MG
  4. METOPROLOL SUCCINATE [Concomitant]
     Indication: HYPERTENSION
     Dosage: 300 MG
  5. PREDNISONE [Concomitant]
     Indication: ARTHRITIS
     Dosage: 5 MG
  6. RANEXA [Concomitant]
     Indication: CORONARY ARTERY DISEASE
     Dosage: 2000 MG
  7. LASIX [Concomitant]
     Dosage: 10 MG
  8. METOPROLOL SUCCINATE [Concomitant]
     Indication: CORONARY ARTERY DISEASE
  9. ASPIRIN [Concomitant]
     Indication: CORONARY ARTERY DISEASE
     Dosage: 81 MG

REACTIONS (3)
  - HAEMORRHAGE SUBCUTANEOUS [None]
  - ANGINA UNSTABLE [None]
  - ANAEMIA [None]
